FAERS Safety Report 13698400 (Version 1)
Quarter: 2017Q2

REPORT INFORMATION
  Report Type: Spontaneous
  Country: FI (occurrence: FI)
  Receive Date: 20170628
  Receipt Date: 20170628
  Transmission Date: 20170830
  Serious: Yes (Hospitalization)
  Sender: FDA-Public Use
  Company Number: FI-TEVA-780269ISR

PATIENT
  Age: 77 Year
  Sex: Male

DRUGS (6)
  1. ALENDRONAT [Suspect]
     Active Substance: ALENDRONATE SODIUM
     Route: 048
     Dates: start: 20170507, end: 20170521
  2. ATORVASTATIN FILM-COATED TABLETS [Concomitant]
     Active Substance: ATORVASTATIN
     Dosage: 40 MILLIGRAM DAILY;
     Route: 048
  3. NORVASC [Concomitant]
     Active Substance: AMLODIPINE BESYLATE
     Dosage: 5 MILLIGRAM DAILY;
     Route: 048
  4. PREDNISOLON TABLET 5MG [Concomitant]
     Active Substance: PREDNISOLONE
     Dosage: 10 MILLIGRAM DAILY;
     Route: 048
     Dates: start: 20170330
  5. ORISANIN MODIFIED-RELEASE CAPSULE, HARD [Concomitant]
     Dosage: 2 DOSAGE FORMS DAILY;
     Route: 048
  6. EMCONCOR CHF FIL-COATED TABLETS [Concomitant]
     Dosage: 2.5 MILLIGRAM DAILY;
     Route: 048

REACTIONS (5)
  - Corneal erosion [Recovering/Resolving]
  - Eye pain [Recovering/Resolving]
  - Eyelid oedema [Recovering/Resolving]
  - Varicella keratitis [Recovering/Resolving]
  - Eyelid ptosis [Recovering/Resolving]

NARRATIVE: CASE EVENT DATE: 20170509
